FAERS Safety Report 24976295 (Version 1)
Quarter: 2025Q1

REPORT INFORMATION
  Report Type: Spontaneous
  Country: IN (occurrence: IN)
  Receive Date: 20250217
  Receipt Date: 20250217
  Transmission Date: 20250408
  Serious: Yes (Hospitalization)
  Sender: ROCHE
  Company Number: IN-ROCHE-10000062691

PATIENT
  Age: 63 Year
  Sex: Male
  Weight: 65 kg

DRUGS (1)
  1. POLIVY [Suspect]
     Active Substance: POLATUZUMAB VEDOTIN-PIIQ
     Indication: Non-Hodgkin^s lymphoma
     Route: 040
     Dates: start: 20240730

REACTIONS (5)
  - Off label use [Unknown]
  - Off label use [Unknown]
  - Gastric perforation [Unknown]
  - Gastric neoplasm [Unknown]
  - Ascites [Unknown]
